FAERS Safety Report 10617462 (Version 2)
Quarter: 2014Q4

REPORT INFORMATION
  Report Type: Spontaneous
  Country: NL (occurrence: NL)
  Receive Date: 20141201
  Receipt Date: 20141205
  Transmission Date: 20150529
  Serious: Yes (Life-Threatening)
  Sender: FDA-Public Use
  Company Number: NL-ASTRAZENECA-2014SE91703

PATIENT
  Age: 14710 Day
  Sex: Female
  Weight: 60 kg

DRUGS (5)
  1. DICLOFENAC-NATRIUM [Concomitant]
     Route: 048
     Dates: start: 20140904
  2. OMEPRAZOL [Suspect]
     Active Substance: OMEPRAZOLE
     Indication: ABDOMINAL DISCOMFORT
     Route: 048
     Dates: start: 20140911, end: 20140911
  3. PRAMIPEXOL [Interacting]
     Active Substance: PRAMIPEXOLE
     Indication: RESTLESS LEGS SYNDROME
     Route: 048
     Dates: start: 2013
  4. KENACORT [Concomitant]
     Active Substance: TRIAMCINOLONE
     Dosage: 40MG/ML AMPUL 1ML
     Route: 014
     Dates: start: 20141112, end: 20141112
  5. OMEPRAZOL [Interacting]
     Active Substance: OMEPRAZOLE
     Indication: ABDOMINAL DISCOMFORT
     Route: 048
     Dates: start: 201411, end: 201411

REACTIONS (3)
  - Drug interaction [Recovered/Resolved]
  - Rash [Recovered/Resolved]
  - Anaphylactic reaction [Recovered/Resolved]

NARRATIVE: CASE EVENT DATE: 20140911
